FAERS Safety Report 24014280 (Version 3)
Quarter: 2024Q3

REPORT INFORMATION
  Report Type: Spontaneous
  Country: US (occurrence: US)
  Receive Date: 20240626
  Receipt Date: 20240815
  Transmission Date: 20241016
  Serious: No
  Sender: ABBVIE
  Company Number: US-ABBVIE-5809242

PATIENT
  Sex: Female

DRUGS (17)
  1. LILETTA [Suspect]
     Active Substance: LEVONORGESTREL
     Indication: Product used for unknown indication
     Dosage: TIME INTERVAL: AS NECESSARY: 18.6 MCG PER 24 HOUR (THREE YEAR). PLACE ONE DEVICE BY INTRA-UTERINE...
     Route: 015
     Dates: start: 20240523
  2. LILETTA [Suspect]
     Active Substance: LEVONORGESTREL
     Dosage: TIME INTERVAL: AS NECESSARY
     Route: 015
     Dates: start: 2024
  3. LILETTA [Suspect]
     Active Substance: LEVONORGESTREL
     Dosage: TIME INTERVAL: AS NECESSARY: 20.1 MCG PER 24 HOUR (SIX YEAR). PLACE ONE DEVICE BY INTRA-UTERINE (...
     Route: 015
     Dates: start: 20210112, end: 20211115
  4. METFORMIN [Concomitant]
     Active Substance: METFORMIN HYDROCHLORIDE
     Indication: Product used for unknown indication
     Route: 048
  5. METFORMIN [Concomitant]
     Active Substance: METFORMIN HYDROCHLORIDE
     Indication: Product used for unknown indication
     Dosage: WITH MORNING AND EVENING MEALS
     Route: 048
  6. GLIPIZIDE [Concomitant]
     Active Substance: GLIPIZIDE
     Indication: Product used for unknown indication
     Dosage: EXTENDED RELEASE 24 HOUR
     Route: 048
  7. GLIPIZIDE [Concomitant]
     Active Substance: GLIPIZIDE
     Indication: Product used for unknown indication
     Route: 048
  8. AMLODIPINE [Concomitant]
     Active Substance: AMLODIPINE BESYLATE
     Indication: Product used for unknown indication
     Route: 048
  9. OZEMPIC [Concomitant]
     Active Substance: SEMAGLUTIDE
     Indication: Product used for unknown indication
     Dosage: ONCE WEEKLY ON SAME DAY OF EACH WEEK?1 MG PER DOSE (4 MG PER 3 ML) SUBCUTANEOUS PEN INJECTOR
     Route: 058
  10. FISH OIL [Concomitant]
     Active Substance: FISH OIL
     Indication: Product used for unknown indication
     Dosage: TAKE 2 BY DAILY
     Route: 050
  11. ZYRTEC [Concomitant]
     Active Substance: CETIRIZINE HYDROCHLORIDE
     Indication: Product used for unknown indication
     Route: 048
  12. FAMCICLOVIR [Concomitant]
     Active Substance: FAMCICLOVIR
     Indication: Product used for unknown indication
  13. FAMCICLOVIR [Concomitant]
     Active Substance: FAMCICLOVIR
     Indication: Product used for unknown indication
  14. CYTOTEC [Concomitant]
     Active Substance: MISOPROSTOL
     Indication: Product used for unknown indication
     Dosage: TAKE ONE TABLET PER ORAL WITH BREAKFAST/DINNER DAY BEFORE PROCEDURE. THEN TWO TABLET VAGINALLY 12...
     Route: 048
     Dates: start: 20240517, end: 20240518
  15. CYTOTEC [Concomitant]
     Active Substance: MISOPROSTOL
     Indication: Product used for unknown indication
     Dosage: TAKE ONE TABLET PER ORAL WITH BREAKFAST/DINNER DAY BEFORE PROCEDURE. THEN TWO TABLET VAGINALLY 12...
     Route: 048
     Dates: start: 20240517, end: 20240518
  16. DOXYCYCLINE [Concomitant]
     Active Substance: DOXYCYCLINE\DOXYCYCLINE HYCLATE
     Indication: Product used for unknown indication
     Dosage: STARTING THE DAY AFTER PROCEDURE
     Route: 048
     Dates: start: 20240517, end: 20240520
  17. IBUPROFEN [Concomitant]
     Active Substance: IBUPROFEN
     Indication: Product used for unknown indication
     Dosage: TIME INTERVAL: 0.33333333 DAYS: WITH FOOD
     Route: 048
     Dates: start: 20240517

REACTIONS (4)
  - Uterine cervix stenosis [Unknown]
  - Device expulsion [Unknown]
  - Uterine spasm [Unknown]
  - Procedural pain [Unknown]

NARRATIVE: CASE EVENT DATE: 20210101
